FAERS Safety Report 5209896-7 (Version None)
Quarter: 2006Q4

REPORT INFORMATION
  Report Type: 
  Country: None (occurrence: None)
  Receive Date: 20061130
  Receipt Date: 20051202
  Transmission Date: 20070319
  Serious: Yes (Other)
  Sender: FDA-Public Use
  Company Number: 2005163985

PATIENT
  Age: 52 Year
  Sex: Female
  Weight: 80.7403 kg

DRUGS (13)
  1. ZYVOX [Suspect]
     Indication: WOUND INFECTION
     Dosage: (1 IN 1 D), INTRAVENOUS
     Route: 042
     Dates: start: 20051111
  2. PLAVIX [Concomitant]
  3. HYZAAR [Concomitant]
  4. IMDUR [Concomitant]
  5. ASPIRIN [Concomitant]
  6. LANTUS [Concomitant]
  7. LIPITOR [Concomitant]
  8. LASIX [Concomitant]
  9. LOPRESSOR [Concomitant]
  10. CIPROFLOXACIN [Concomitant]
  11. VANCOMYCIN [Concomitant]
  12. ANTIBIOTICS (ANTIBIOTICS) [Concomitant]
  13. ZYVOX [Suspect]
     Dosage: 600 MG (600 MG, 1 IN 1 D), ORAL
     Route: 048
     Dates: start: 20051111

REACTIONS (5)
  - DYSGEUSIA [None]
  - HAEMOGLOBIN DECREASED [None]
  - NAUSEA [None]
  - VOMITING [None]
  - WOUND SECRETION [None]
